FAERS Safety Report 4386401-9 (Version None)
Quarter: 2004Q2

REPORT INFORMATION
  Report Type: 
  Country: None (occurrence: None)
  Receive Date: 20040623
  Receipt Date: 20040614
  Transmission Date: 20050107
  Serious: Yes (Hospitalization)
  Sender: FDA-Public Use
  Company Number: 2004UW09093

PATIENT
  Age: 76 Year
  Sex: Male
  Weight: 113.3993 kg

DRUGS (8)
  1. IRESSA [Suspect]
     Indication: LUNG SQUAMOUS CELL CARCINOMA STAGE UNSPECIFIED
     Dosage: 250 MG QD PO
     Route: 048
     Dates: start: 20040325, end: 20040422
  2. COUMADIN [Concomitant]
  3. LASIX [Concomitant]
  4. NICARDIPNE [Concomitant]
  5. ISOSORBIDE [Concomitant]
  6. KCL TAB [Concomitant]
  7. CLARITIN-D [Concomitant]
  8. ASPIRIN [Concomitant]

REACTIONS (13)
  - ACNE [None]
  - ANOREXIA [None]
  - DYSGEUSIA [None]
  - GASTROENTERITIS [None]
  - HAEMOPTYSIS [None]
  - HYPOKALAEMIA [None]
  - HYPOVOLAEMIA [None]
  - INTERNATIONAL NORMALISED RATIO INCREASED [None]
  - OEDEMA PERIPHERAL [None]
  - PLEURAL EFFUSION [None]
  - RASH [None]
  - SECRETION DISCHARGE [None]
  - WEIGHT DECREASED [None]
